FAERS Safety Report 12546644 (Version 3)
Quarter: 2016Q3

REPORT INFORMATION
  Report Type: Spontaneous
  Country: BR (occurrence: BR)
  Receive Date: 20160711
  Receipt Date: 20160715
  Transmission Date: 20161109
  Serious: Yes (Other)
  Sender: FDA-Public Use
  Company Number: BR-ABBVIE-16P-020-1672360-00

PATIENT
  Sex: Male
  Weight: 75 kg

DRUGS (15)
  1. RISPERIDONE. [Suspect]
     Active Substance: RISPERIDONE
     Indication: CEREBROVASCULAR ACCIDENT
     Dosage: 2 MG;AT NIGHT
     Route: 048
     Dates: start: 2008
  2. RISPERIDONE. [Suspect]
     Active Substance: RISPERIDONE
     Indication: SEIZURE
     Route: 065
  3. DIAZEPAM. [Suspect]
     Active Substance: DIAZEPAM
     Indication: SEIZURE
     Route: 065
  4. AKINETON [Suspect]
     Active Substance: BIPERIDEN HYDROCHLORIDE
     Indication: EXTRAPYRAMIDAL DISORDER
     Route: 065
  5. DIAZEPAM. [Suspect]
     Active Substance: DIAZEPAM
     Indication: CEREBROVASCULAR ACCIDENT
     Dosage: DAILY DOSE 20 MG; MORNING AND NIGHT
     Route: 048
     Dates: start: 2008
  6. HIDANTAL [Suspect]
     Active Substance: PHENYTOIN SODIUM
     Indication: SEIZURE
     Route: 065
  7. RIVOTRIL [Suspect]
     Active Substance: CLONAZEPAM
     Indication: CEREBROVASCULAR ACCIDENT
     Dosage: AFTERNOON
     Route: 048
     Dates: start: 2008
  8. AKINETON [Suspect]
     Active Substance: BIPERIDEN HYDROCHLORIDE
     Indication: PROPHYLAXIS
     Route: 048
     Dates: start: 2008, end: 2010
  9. NEOZINE [Suspect]
     Active Substance: LEVOMEPROMAZINE
     Indication: SLEEP DISORDER THERAPY
     Dosage: UNIT DOSE 0.5 TABLET AT NIGHT
     Route: 048
     Dates: start: 2008
  10. HIDANTAL [Suspect]
     Active Substance: PHENYTOIN SODIUM
     Indication: CEREBROVASCULAR ACCIDENT
     Dosage: DAILY DOSE 200 MG;MORNING AND NIGHT
     Route: 048
     Dates: start: 2008
  11. T3 [Concomitant]
     Active Substance: LIOTHYRONINE SODIUM
     Indication: HYPOTHYROIDISM
     Dosage: 1 TABLET (MORNING:FASTING)
     Route: 048
     Dates: start: 2002
  12. RIVOTRIL [Suspect]
     Active Substance: CLONAZEPAM
     Indication: SEIZURE
     Route: 065
  13. PHENYTOIN. [Suspect]
     Active Substance: PHENYTOIN
     Indication: PRODUCT USED FOR UNKNOWN INDICATION
     Route: 065
  14. SYNTHROID [Suspect]
     Active Substance: LEVOTHYROXINE SODIUM
     Indication: HYPOTHYROIDISM
     Dosage: DAILY DOSE: 200 MG MORNING (FASTING)
     Route: 048
     Dates: start: 2004
  15. ETNA [Suspect]
     Active Substance: UNSPECIFIED INGREDIENT
     Indication: DIABETIC NEUROPATHY
     Route: 048

REACTIONS (11)
  - Diabetes mellitus [Unknown]
  - Cerebrovascular accident [Recovered/Resolved]
  - Diabetic retinopathy [Recovered/Resolved]
  - Hypersensitivity [Recovered/Resolved]
  - Diabetic neuropathy [Unknown]
  - Diabetes mellitus inadequate control [Not Recovered/Not Resolved]
  - Retinal vascular disorder [Recovered/Resolved]
  - Seizure [Recovered/Resolved]
  - Constipation [Recovered/Resolved]
  - Headache [Recovered/Resolved]
  - Tinnitus [Recovered/Resolved]

NARRATIVE: CASE EVENT DATE: 2008
